FAERS Safety Report 25776415 (Version 1)
Quarter: 2025Q3

REPORT INFORMATION
  Report Type: Spontaneous
  Country: US (occurrence: US)
  Receive Date: 20250909
  Receipt Date: 20250909
  Transmission Date: 20251020
  Serious: No
  Sender: DOMPE FARMACEUTICI
  Company Number: US-FARMAPROD-202408-3062

PATIENT
  Sex: Female
  Weight: 66.22 kg

DRUGS (7)
  1. OXERVATE [Suspect]
     Active Substance: CENEGERMIN-BKBJ
     Indication: Neurotrophic keratopathy
     Route: 047
     Dates: start: 20240821
  2. OXERVATE [Suspect]
     Active Substance: CENEGERMIN-BKBJ
     Indication: Hypoaesthesia eye
  3. OXERVATE [Suspect]
     Active Substance: CENEGERMIN-BKBJ
     Dates: start: 20250312
  4. VITAMIN D2 [Concomitant]
     Active Substance: ERGOCALCIFEROL
  5. VITAMIN C [Concomitant]
     Active Substance: ASCORBIC ACID
  6. MIEBO [Concomitant]
     Active Substance: PERFLUOROHEXYLOCTANE
  7. DIHYDROERGOTAMINE MESYLATE [Concomitant]
     Active Substance: DIHYDROERGOTAMINE MESYLATE

REACTIONS (5)
  - Eye pain [Recovering/Resolving]
  - Periorbital swelling [Unknown]
  - Wrong technique in product usage process [Unknown]
  - Photophobia [Not Recovered/Not Resolved]
  - Eye irritation [Not Recovered/Not Resolved]
